FAERS Safety Report 8954979 (Version 1)
Quarter: 2012Q4

REPORT INFORMATION
  Report Type: 
  Country: JP (occurrence: JP)
  Receive Date: 20121207
  Receipt Date: 20121207
  Transmission Date: 20130627
  Serious: Yes (Death)
  Sender: FDA-Public Use
  Company Number: JP-BAXTER-2012BAX025976

PATIENT
  Sex: Male

DRUGS (1)
  1. DIANEAL-N PD-2 1.5% [Suspect]
     Indication: GLOMERULONEPHRITIS CHRONIC
     Route: 033
     Dates: end: 20121201

REACTIONS (1)
  - Cardiac failure [Fatal]
